FAERS Safety Report 17925847 (Version 1)
Quarter: 2020Q2

REPORT INFORMATION
  Report Type: Spontaneous
  Country: DK (occurrence: DK)
  Receive Date: 20200622
  Receipt Date: 20200622
  Transmission Date: 20200714
  Serious: Yes (Other)
  Sender: FDA-Public Use
  Company Number: DK-PURDUE-GBR-2020-0077332

PATIENT
  Age: 81 Year
  Sex: Female

DRUGS (11)
  1. DEXTROPROPOXYPHENE [Concomitant]
     Active Substance: PROPOXYPHENE HYDROCHLORIDE
     Indication: PAIN
     Dosage: 65 MG, TID
     Route: 048
  2. MEPIVACAINE [Concomitant]
     Active Substance: MEPIVACAINE HYDROCHLORIDE
     Indication: EPIDURAL ANAESTHESIA
     Dosage: 14 ML (STRENGTH 2%)
     Route: 008
  3. FENTANYL. [Concomitant]
     Active Substance: FENTANYL
     Indication: SEDATION
  4. PARACETAMOL [Concomitant]
     Active Substance: ACETAMINOPHEN
     Indication: ARTHRITIS
  5. NON-PMN MORPHINE SULFATE [Suspect]
     Active Substance: MORPHINE SULFATE
     Indication: GENERAL ANAESTHESIA
     Dosage: 6 MG, BID (TWICE DAILY, ONE DAY LATER)
     Route: 008
  6. KETOBEMIDONE [Concomitant]
     Active Substance: KETOBEMIDONE
     Indication: PAIN
     Dosage: 20 MG, DAILY
     Route: 048
  7. KETOBEMIDONE [Concomitant]
     Active Substance: KETOBEMIDONE
     Dosage: 5 MG, QID
     Route: 030
  8. DIAZEPAM. [Concomitant]
     Active Substance: DIAZEPAM
     Indication: SEDATION
  9. PREDNISOLONE. [Concomitant]
     Active Substance: PREDNISOLONE
     Indication: ARTHRITIS
  10. NON-PMN MORPHINE SULFATE [Suspect]
     Active Substance: MORPHINE SULFATE
     Indication: AMPUTATION STUMP PAIN
     Dosage: 4 MG, BID (TWICE DAILY, STRENGTH 0.4 MG/ML)
     Route: 008
  11. NON-PMN MORPHINE SULFATE [Suspect]
     Active Substance: MORPHINE SULFATE
     Indication: GANGRENE

REACTIONS (3)
  - Miosis [Recovered/Resolved]
  - Respiratory depression [Recovered/Resolved]
  - Cyanosis [Recovered/Resolved]
